FAERS Safety Report 20227778 (Version 1)
Quarter: 2021Q4

REPORT INFORMATION
  Report Type: Spontaneous
  Country: CA (occurrence: CA)
  Receive Date: 20211224
  Receipt Date: 20211224
  Transmission Date: 20220303
  Serious: Yes (Other)
  Sender: FDA-Public Use
  Company Number: CA-NAPPMUNDI-GBR-2021-0093466

PATIENT
  Age: 51 Year
  Sex: Female

DRUGS (4)
  1. MORPHINE SULFATE [Suspect]
     Active Substance: MORPHINE SULFATE
     Indication: Product used for unknown indication
     Dosage: UNK
     Route: 065
  2. ENTYVIO [Suspect]
     Active Substance: VEDOLIZUMAB
     Indication: Crohn^s disease
     Dosage: 300 MG, UNK
     Route: 042
  3. ENTYVIO [Suspect]
     Active Substance: VEDOLIZUMAB
     Dosage: 300 MG, UNK
     Route: 042
  4. TYLENOL                            /00020001/ [Concomitant]
     Indication: Premedication
     Dosage: 975 MG, UNK
     Route: 048

REACTIONS (4)
  - Burning sensation [Recovered/Resolved]
  - Off label use [Recovered/Resolved]
  - Upper limb fracture [Recovered/Resolved]
  - Urticaria [Recovered/Resolved]
